FAERS Safety Report 20298458 (Version 1)
Quarter: 2022Q1

REPORT INFORMATION
  Report Type: Spontaneous
  Country: US (occurrence: None)
  Receive Date: 20220104
  Receipt Date: 20220104
  Transmission Date: 20220424
  Serious: Yes (Death)
  Sender: FDA-Public Use
  Company Number: None

PATIENT
  Sex: Female

DRUGS (1)
  1. TOBI PODHALER [Suspect]
     Active Substance: TOBRAMYCIN
     Indication: Bronchiectasis
     Dosage: INHALE 4 CAPSULES VIA PODHALER TWICE DAILY; USE 28 DAYS, STOP 28 DAYS, REPEAT CYCLE
     Route: 055
     Dates: start: 20210128, end: 202201

REACTIONS (1)
  - Death [None]
